FAERS Safety Report 14257466 (Version 1)
Quarter: 2017Q4

REPORT INFORMATION
  Report Type: Spontaneous
  Country: BE (occurrence: BE)
  Receive Date: 20171207
  Receipt Date: 20171207
  Transmission Date: 20180321
  Serious: Yes (Hospitalization, Other)
  Sender: FDA-Public Use
  Company Number: BE-VISTAPHARM, INC.-VER201711-001227

PATIENT
  Age: 73 Year
  Sex: Female

DRUGS (2)
  1. FUROSEMIDE. [Concomitant]
     Active Substance: FUROSEMIDE
     Indication: HYPERTENSION
  2. HYDROCODONE AND ACETAMINOPHEN [Suspect]
     Active Substance: ACETAMINOPHEN\HYDROCODONE
     Indication: BONE PAIN

REACTIONS (3)
  - Metabolic acidosis [Recovering/Resolving]
  - Mental status changes [Recovering/Resolving]
  - Status epilepticus [Unknown]
